FAERS Safety Report 23242124 (Version 1)
Quarter: 2023Q4

REPORT INFORMATION
  Report Type: Spontaneous
  Country: FR (occurrence: FR)
  Receive Date: 20231129
  Receipt Date: 20231129
  Transmission Date: 20240110
  Serious: Yes (Other)
  Sender: FDA-Public Use
  Company Number: FR-MYLANLABS-2023M1126364

PATIENT
  Age: 57 Year
  Sex: Female

DRUGS (12)
  1. CARBOPLATIN [Suspect]
     Active Substance: CARBOPLATIN
     Indication: Ovarian clear cell carcinoma
     Dosage: UNK UNK, Q3W, FOR 4 CYCLES, EVERY 3 WEEKS
     Route: 065
  2. CARBOPLATIN [Suspect]
     Active Substance: CARBOPLATIN
     Indication: Ovarian cancer metastatic
  3. CARBOPLATIN [Suspect]
     Active Substance: CARBOPLATIN
     Indication: Ovarian cancer stage III
  4. PACLITAXEL [Suspect]
     Active Substance: PACLITAXEL
     Indication: Ovarian clear cell carcinoma
     Dosage: UNK UNK, CYCLE
     Route: 065
  5. PACLITAXEL [Suspect]
     Active Substance: PACLITAXEL
     Indication: Ovarian cancer metastatic
  6. PACLITAXEL [Suspect]
     Active Substance: PACLITAXEL
     Indication: Ovarian cancer stage III
  7. GEMCITABINE [Suspect]
     Active Substance: GEMCITABINE
     Indication: Ovarian clear cell carcinoma
     Dosage: UNK, CYCLE  (2 CYCLES)
     Route: 065
  8. GEMCITABINE [Suspect]
     Active Substance: GEMCITABINE
     Indication: Ovarian cancer metastatic
  9. GEMCITABINE [Suspect]
     Active Substance: GEMCITABINE
     Indication: Ovarian cancer stage III
  10. DOXORUBICIN [Suspect]
     Active Substance: DOXORUBICIN
     Indication: Ovarian clear cell carcinoma
     Dosage: UNK, Q3W, FOR 2 CYCLES EVERY 3 WEEKS
     Route: 065
  11. DOXORUBICIN [Suspect]
     Active Substance: DOXORUBICIN
     Indication: Ovarian cancer metastatic
  12. DOXORUBICIN [Suspect]
     Active Substance: DOXORUBICIN
     Indication: Ovarian cancer stage III

REACTIONS (3)
  - Drug ineffective [Unknown]
  - Disease progression [Unknown]
  - Hypersensitivity [Unknown]
